FAERS Safety Report 25903437 (Version 1)
Quarter: 2025Q4

REPORT INFORMATION
  Report Type: Spontaneous
  Country: US (occurrence: US)
  Receive Date: 20251009
  Receipt Date: 20251009
  Transmission Date: 20260118
  Serious: No
  Sender: CB FLEET
  Company Number: US-PRESTIGE-202508-US-002644

PATIENT
  Age: 90 Year
  Sex: Female

DRUGS (1)
  1. MONISTAT 7 COMBINATION PACK TRIPLE ACTION [Suspect]
     Active Substance: MICONAZOLE NITRATE
     Indication: Fungal infection
     Dosage: I HAVE USED THE PRODUCT 8 TIMES NOW IN 4 DAYS

REACTIONS (4)
  - Back pain [Unknown]
  - Abdominal pain lower [Unknown]
  - Diarrhoea [Unknown]
  - Inappropriate schedule of product administration [None]
